FAERS Safety Report 6565605-0 (Version None)
Quarter: 2010Q1

REPORT INFORMATION
  Report Type: 
  Country: None (occurrence: None)
  Receive Date: 20100201
  Receipt Date: 20100122
  Transmission Date: 20100710
  Serious: Yes (Other)
  Sender: FDA-Public Use
  Company Number: US-RB-000154-10

PATIENT
  Age: 50 Year
  Sex: Female

DRUGS (1)
  1. SUBOXONE [Suspect]
     Route: 060
     Dates: start: 20080101

REACTIONS (4)
  - ABDOMINAL PAIN UPPER [None]
  - BREAST CANCER [None]
  - DRUG DEPENDENCE [None]
  - HERNIA [None]
